FAERS Safety Report 23656195 (Version 2)
Quarter: 2024Q2

REPORT INFORMATION
  Report Type: Spontaneous
  Country: US (occurrence: None)
  Receive Date: 20240321
  Receipt Date: 20240522
  Transmission Date: 20240715
  Serious: Yes (Other)
  Sender: FDA-Public Use
  Company Number: US-ROCHE-3525803

PATIENT
  Age: 69 Year
  Sex: Female

DRUGS (2)
  1. CELLCEPT [Suspect]
     Active Substance: MYCOPHENOLATE MOFETIL
     Indication: Product used for unknown indication
     Route: 065
     Dates: start: 2024
  2. KRYSTEXXA [Suspect]
     Active Substance: PEGLOTICASE
     Indication: Gout
     Dosage: 2ND INFUSION: /4/2023, 3RD INFUSION: 23/01/2024, 4TH: 6/FEB/2024, 5TH:5/MAR/2024, 6TH: 04/02/2024
     Route: 042
     Dates: start: 20220707

REACTIONS (9)
  - Renal failure [Not Recovered/Not Resolved]
  - Chronic kidney disease [Unknown]
  - Gout [Not Recovered/Not Resolved]
  - Arthritis [Unknown]
  - Limb discomfort [Unknown]
  - Off label use [Unknown]
  - Urticaria [Recovered/Resolved]
  - Blood uric acid increased [Unknown]
  - Blood potassium abnormal [Unknown]

NARRATIVE: CASE EVENT DATE: 20240101
